FAERS Safety Report 16013934 (Version 2)
Quarter: 2019Q1

REPORT INFORMATION
  Report Type: Spontaneous
  Country: FI (occurrence: FI)
  Receive Date: 20190227
  Receipt Date: 20190325
  Transmission Date: 20190418
  Serious: Yes (Hospitalization)
  Sender: FDA-Public Use
  Company Number: FI-GLAXOSMITHKLINE-FI2019GSK033782

PATIENT
  Age: 50 Year
  Sex: Female

DRUGS (1)
  1. IMIGRAN [Suspect]
     Active Substance: SUMATRIPTAN SUCCINATE
     Indication: MIGRAINE
     Dosage: UNK
     Route: 042

REACTIONS (3)
  - Migraine [Recovered/Resolved]
  - Expired product administered [Unknown]
  - Product complaint [Unknown]
